FAERS Safety Report 10543513 (Version 1)
Quarter: 2014Q4

REPORT INFORMATION
  Report Type: Spontaneous
  Country: US (occurrence: US)
  Receive Date: 20141027
  Receipt Date: 20141027
  Transmission Date: 20150529
  Serious: No
  Sender: FDA-Public Use
  Company Number: US-PFIZER INC-2014292047

PATIENT
  Age: 77 Year
  Sex: Female

DRUGS (1)
  1. CELEBREX [Suspect]
     Active Substance: CELECOXIB
     Dosage: 200 MG, 2X/DAY (TWO 200 MG CAPSULES PER DAY)
     Dates: start: 1998

REACTIONS (3)
  - Discomfort [Unknown]
  - Pain [Unknown]
  - Intentional product misuse [Unknown]
